FAERS Safety Report 12117954 (Version 1)
Quarter: 2016Q1

REPORT INFORMATION
  Report Type: Report from Study
  Country: US (occurrence: US)
  Receive Date: 20160226
  Receipt Date: 20160226
  Transmission Date: 20160526
  Serious: Yes (Other)
  Sender: FDA-Public Use
  Company Number: US-AMGEN-USASL2016022246

PATIENT
  Age: 52 Year
  Sex: Female

DRUGS (2)
  1. ENBREL [Suspect]
     Active Substance: ETANERCEPT
     Indication: RHEUMATOID ARTHRITIS
     Dosage: 50 MG, UNK
     Route: 065
     Dates: start: 20050418
  2. METHOTREXATE [Concomitant]
     Active Substance: METHOTREXATE
     Dosage: UNK

REACTIONS (8)
  - Fungal infection [Unknown]
  - Foot deformity [Unknown]
  - Shoulder operation [Unknown]
  - Intentional product misuse [Unknown]
  - Knee arthroplasty [Unknown]
  - Spinal operation [Unknown]
  - Spinal fusion surgery [Unknown]
  - Bunion operation [Unknown]

NARRATIVE: CASE EVENT DATE: 200610
